FAERS Safety Report 16660242 (Version 1)
Quarter: 2019Q3

REPORT INFORMATION
  Report Type: Spontaneous
  Country: PL (occurrence: PL)
  Receive Date: 20190802
  Receipt Date: 20190802
  Transmission Date: 20191004
  Serious: Yes (Death, Other)
  Sender: FDA-Public Use
  Company Number: PL-009507513-1907POL015920

PATIENT
  Age: 73 Year
  Sex: Female

DRUGS (1)
  1. KEYTRUDA [Suspect]
     Active Substance: PEMBROLIZUMAB
     Indication: LUNG NEOPLASM MALIGNANT
     Dosage: UNK

REACTIONS (4)
  - Hypophysitis [Fatal]
  - Pneumonia [Unknown]
  - Thyroid disorder [Unknown]
  - Nervous system disorder [Fatal]
